FAERS Safety Report 9275032 (Version 1)
Quarter: 2013Q2

REPORT INFORMATION
  Report Type: Report from Study
  Country: US (occurrence: US)
  Receive Date: 20130507
  Receipt Date: 20130507
  Transmission Date: 20140414
  Serious: Yes (Hospitalization, Other)
  Sender: FDA-Public Use
  Company Number: US-ASTELLAS-2013US004633

PATIENT
  Age: 73 Year
  Sex: Male

DRUGS (31)
  1. ERLOTINIB TABLET [Suspect]
     Indication: NON-SMALL CELL LUNG CANCER STAGE IV
     Dosage: 100 MG, UID/QD
     Route: 048
     Dates: start: 20130322, end: 20130418
  2. MK-2206 [Suspect]
     Indication: NON-SMALL CELL LUNG CANCER STAGE IV
     Dosage: 100 MG, WEEKLY
     Route: 048
     Dates: start: 20130322, end: 20130418
  3. TAMSULOSIN [Concomitant]
     Indication: BENIGN PROSTATIC HYPERPLASIA
     Dosage: 0.4 MG, UID/QD
     Route: 048
     Dates: start: 200701
  4. NASACORT [Concomitant]
     Indication: HYPERSENSITIVITY
     Dosage: 1 SPRAY, PRN
     Route: 045
     Dates: start: 2003
  5. RANITIDINE [Concomitant]
     Indication: HYPERSENSITIVITY
     Dosage: 300 MG, UID/QD
     Route: 048
     Dates: start: 200801
  6. DILTIAZEM [Concomitant]
     Indication: ATRIAL FIBRILLATION
     Dosage: 240 MG, UID/QD
     Route: 048
     Dates: start: 201109
  7. ASPIRIN [Concomitant]
     Indication: ATRIAL FIBRILLATION
     Dosage: 325 MG, UID/QD
     Route: 048
     Dates: start: 201109
  8. VALIUM                             /00017001/ [Concomitant]
     Indication: ANXIETY
     Dosage: 2.5 MG, PRN
     Route: 048
     Dates: start: 20110701
  9. PROTONIX [Concomitant]
     Indication: DYSPEPSIA
     Dosage: 40 MG, UID/QD
     Route: 048
     Dates: start: 200808
  10. ALEVE [Concomitant]
     Indication: BACK PAIN
     Dosage: 500 MG, PRN
     Route: 048
     Dates: start: 20121220
  11. ALLERGY INJECTION [Concomitant]
     Indication: HYPERSENSITIVITY
     Dosage: 1 DF, MONTHLY
     Route: 030
     Dates: start: 20130315
  12. TYLENOL                            /00020001/ [Concomitant]
     Indication: BACK PAIN
     Dosage: 500 MG, PRN
     Route: 048
     Dates: start: 20121220
  13. COLACE [Concomitant]
     Indication: CONSTIPATION
     Dosage: UNK, PRN
     Route: 048
     Dates: start: 20121220
  14. ATIVAN [Concomitant]
     Indication: ANXIETY
     Dosage: 1 MG, PRN
     Route: 048
     Dates: start: 20130220
  15. IMODIUM [Concomitant]
     Indication: DIARRHOEA
     Dosage: 2 MG, BID PRN
     Route: 048
     Dates: start: 20121228
  16. OXISTAT [Concomitant]
     Indication: TINEA PEDIS
     Dosage: 1 %, BID
     Route: 061
     Dates: start: 20130110, end: 20130327
  17. MAGIC MOUTHWASH [Concomitant]
     Indication: STOMATITIS
     Dosage: 5 ML, QID
     Route: 065
     Dates: start: 20130131
  18. CLINDAMYCIN [Concomitant]
     Indication: RASH
     Dosage: 1 %, PRN
     Route: 061
     Dates: start: 20130103
  19. CLOBETASOL [Concomitant]
     Indication: RASH
     Dosage: 0.05 %, PRN
     Route: 061
     Dates: start: 20130103
  20. MIRTAZAPINE [Concomitant]
     Indication: DEPRESSION
     Dosage: 7.5 MG, QHS
     Route: 048
     Dates: start: 20130220
  21. METAMUCIL                          /00029101/ [Concomitant]
     Indication: PRODUCT USED FOR UNKNOWN INDICATION
     Dosage: 1 PACKET, UID/QD
     Route: 048
     Dates: start: 20020101
  22. DAILY MULTIVITAMIN [Concomitant]
     Indication: VITAMIN SUPPLEMENTATION
     Dosage: 1 TABLET, UID/QD
     Route: 048
     Dates: start: 20020101
  23. AQUAPHOR                           /00298701/ [Concomitant]
     Indication: DRY SKIN
     Dosage: UNK, PRN
     Route: 061
     Dates: start: 20130115
  24. METFORMIN [Concomitant]
     Indication: HYPERGLYCAEMIA
     Dosage: 1000 MG, UID/QD
     Route: 048
     Dates: start: 20010308
  25. MAGONATE [Concomitant]
     Indication: ROUTINE HEALTH MAINTENANCE
     Dosage: 27.5 MG, UID/QD
     Route: 048
     Dates: start: 20020101
  26. LYCOPENE [Concomitant]
     Indication: ROUTINE HEALTH MAINTENANCE
     Dosage: 10 MG, UID/QD
     Route: 048
     Dates: start: 20020101
  27. GLUCOSAMINE + CHONDROITIN          /01430901/ [Concomitant]
     Indication: ROUTINE HEALTH MAINTENANCE
     Dosage: 1 TABLET, TID
     Route: 048
     Dates: start: 20020101
  28. OMEGA 3 FISH OIL [Concomitant]
     Indication: ROUTINE HEALTH MAINTENANCE
     Dosage: 1200 MG, QID
     Route: 048
     Dates: start: 20020101
  29. LOMOTIL [Concomitant]
     Indication: DIARRHOEA
     Dosage: 0.025 MG-2.5 MG, QID
     Route: 048
     Dates: start: 20130125
  30. COENZYME Q10 [Concomitant]
     Indication: ROUTINE HEALTH MAINTENANCE
     Dosage: 30 MG, UID/QD
     Route: 048
     Dates: start: 20020101
  31. CLARITIN                           /00917501/ [Concomitant]
     Indication: HYPERSENSITIVITY
     Dosage: 1 TABLET, PRN
     Route: 048
     Dates: start: 20130401

REACTIONS (4)
  - Incorrect dose administered [Unknown]
  - Coronary artery occlusion [Unknown]
  - Myocardial infarction [Unknown]
  - Malignant neoplasm progression [None]
